FAERS Safety Report 13349059 (Version 1)
Quarter: 2017Q1

REPORT INFORMATION
  Report Type: Spontaneous
  Country: GB (occurrence: GB)
  Receive Date: 20170320
  Receipt Date: 20170320
  Transmission Date: 20170428
  Serious: Yes (Other)
  Sender: FDA-Public Use
  Company Number: GB-ACCORD-049147

PATIENT
  Sex: Male

DRUGS (2)
  1. TRAMADOL ACCORD [Suspect]
     Active Substance: TRAMADOL
     Dosage: 20 CAPSULES DAILY
  2. VALIUM [Concomitant]
     Active Substance: DIAZEPAM
     Indication: SLEEP DISORDER

REACTIONS (3)
  - Tremor [Unknown]
  - Dysphemia [Unknown]
  - Drug abuse [Unknown]
